FAERS Safety Report 14079559 (Version 1)
Quarter: 2017Q4

REPORT INFORMATION
  Report Type: Spontaneous
  Country: SE (occurrence: SE)
  Receive Date: 20171012
  Receipt Date: 20171012
  Transmission Date: 20180321
  Serious: Yes (Death)
  Sender: FDA-Public Use
  Company Number: SE-TEVA-813788ISR

PATIENT
  Age: 87 Year
  Sex: Female

DRUGS (1)
  1. VALACIKLOVIR [Suspect]
     Active Substance: VALACYCLOVIR HYDROCHLORIDE
     Route: 048

REACTIONS (2)
  - Hepatic failure [Fatal]
  - Acute kidney injury [Fatal]
